FAERS Safety Report 16089596 (Version 1)
Quarter: 2019Q1

REPORT INFORMATION
  Report Type: Spontaneous
  Country: US (occurrence: US)
  Receive Date: 20190319
  Receipt Date: 20190319
  Transmission Date: 20190418
  Serious: No
  Sender: FDA-Public Use
  Company Number: US-MILLICENT HOLDINGS LTD.-MILL20190761

PATIENT
  Sex: Female

DRUGS (1)
  1. FEMRING [Suspect]
     Active Substance: ESTRADIOL ACETATE
     Indication: PRODUCT USED FOR UNKNOWN INDICATION
     Dosage: 0.1 MG
     Route: 065

REACTIONS (1)
  - Drug effect incomplete [Unknown]
